FAERS Safety Report 4995069-X (Version None)
Quarter: 2006Q2

REPORT INFORMATION
  Report Type: 
  Country: None (occurrence: None)
  Receive Date: 20060503
  Receipt Date: 20060425
  Transmission Date: 20061013
  Serious: Yes (Other)
  Sender: FDA-Public Use
  Company Number: 2006-04-1841

PATIENT
  Sex: Female

DRUGS (7)
  1. INTRON A [Suspect]
     Indication: HEPATITIS C
     Dosage: 3 MIU TIW
     Dates: end: 20060101
  2. EPOETIN ALPHA [Concomitant]
  3. NEUPOGEN [Concomitant]
  4. FOLATE [Concomitant]
  5. PYRIDOXINE HCL [Concomitant]
  6. PRILOSEC [Concomitant]
  7. CALCIUM GLUCONATE [Concomitant]

REACTIONS (6)
  - HEPATIC FUNCTION ABNORMAL [None]
  - HEPATITIS C [None]
  - MYELODYSPLASTIC SYNDROME [None]
  - OESOPHAGEAL VARICES HAEMORRHAGE [None]
  - PANCYTOPENIA [None]
  - THERAPY NON-RESPONDER [None]
